FAERS Safety Report 10470087 (Version 1)
Quarter: 2014Q3

REPORT INFORMATION
  Report Type: Spontaneous
  Country: US (occurrence: US)
  Receive Date: 20140923
  Receipt Date: 20140923
  Transmission Date: 20150326
  Serious: Yes (Hospitalization)
  Sender: FDA-Public Use
  Company Number: US-ROXANE LABORATORIES, INC.-2014-RO-01418RO

PATIENT
  Age: 79 Year
  Sex: Male
  Weight: 87 kg

DRUGS (3)
  1. DEXAMETHASONE. [Suspect]
     Active Substance: DEXAMETHASONE
     Indication: PLASMA CELL MYELOMA
     Route: 048
     Dates: start: 20101116, end: 20110118
  2. DEXAMETHASONE. [Suspect]
     Active Substance: DEXAMETHASONE
     Route: 048
     Dates: start: 20110725
  3. VELCADE [Suspect]
     Active Substance: BORTEZOMIB
     Indication: PLASMA CELL MYELOMA
     Route: 042
     Dates: start: 20101116, end: 20110121

REACTIONS (5)
  - Back pain [Unknown]
  - Oedema peripheral [Unknown]
  - Pneumonia [Unknown]
  - Renal failure acute [Unknown]
  - Constipation [Unknown]

NARRATIVE: CASE EVENT DATE: 20110208
